FAERS Safety Report 6632361-7 (Version None)
Quarter: 2010Q1

REPORT INFORMATION
  Report Type: 
  Country: None (occurrence: None)
  Receive Date: 20100310
  Receipt Date: 20100303
  Transmission Date: 20100710
  Serious: Yes (Other)
  Sender: FDA-Public Use
  Company Number: CM10-0005

PATIENT
  Age: 59 Year
  Sex: Male

DRUGS (10)
  1. LARYNG-O-JET KIT [Suspect]
     Dosage: NOT PROVIDED; UNKNWON
     Dates: start: 20100224
  2. . [Concomitant]
  3. MIDAZOLAM HCL [Concomitant]
  4. FENTANYL [Concomitant]
  5. LIDOCAINE [Concomitant]
  6. PROPOFOL [Concomitant]
  7. ROC (ROCURONIUM) [Concomitant]
  8. PEPCID/REGLAN/ZOFRAN [Concomitant]
  9. EPHEDONE [Concomitant]
  10. DEXANETHASONE [Concomitant]

REACTIONS (2)
  - FOREIGN BODY [None]
  - MEDICAL DEVICE COMPLICATION [None]
